FAERS Safety Report 14696035 (Version 1)
Quarter: 2018Q1

REPORT INFORMATION
  Report Type: Spontaneous
  Country: RU (occurrence: RU)
  Receive Date: 20180329
  Receipt Date: 20180329
  Transmission Date: 20180509
  Serious: Yes (Hospitalization)
  Sender: FDA-Public Use
  Company Number: RU-ALLERGAN-1816487US

PATIENT
  Sex: Female

DRUGS (6)
  1. NEBIVOLOL HCL - BP [Suspect]
     Active Substance: NEBIVOLOL
     Dosage: 0.25 DF, UNK
     Route: 065
  2. MAGNESIUM SULFATE. [Suspect]
     Active Substance: MAGNESIUM SULFATE
     Indication: CEREBROVASCULAR ACCIDENT
     Dosage: UNK
     Route: 065
  3. NEBIVOLOL HCL - BP [Suspect]
     Active Substance: NEBIVOLOL
     Indication: CARDIAC DISORDER
     Dosage: 5 MG, UNK
     Route: 065
  4. LERKAMEN [Concomitant]
     Active Substance: LERCANIDIPINE HYDROCHLORIDE
     Dosage: 10 MG, UNK
  5. VEROSPIRON [Suspect]
     Active Substance: SPIRONOLACTONE
     Indication: CEREBROVASCULAR ACCIDENT
     Dosage: UNK
     Route: 065
  6. PERINEVA [Concomitant]
     Active Substance: PERINDOPRIL ERBUMINE
     Dosage: 4 MG, UNK

REACTIONS (5)
  - Cerebrovascular accident [Recovering/Resolving]
  - Arrhythmia [Recovering/Resolving]
  - Counterfeit product administered [Unknown]
  - Dermatitis allergic [Recovering/Resolving]
  - Peripheral swelling [Recovering/Resolving]
